FAERS Safety Report 5931977-0 (Version None)
Quarter: 2008Q4

REPORT INFORMATION
  Report Type: 
  Country: None (occurrence: None)
  Receive Date: 20081027
  Receipt Date: 20081020
  Transmission Date: 20090506
  Serious: Yes (Hospitalization)
  Sender: FDA-Public Use
  Company Number: ES-ROXANE LABORATORIES, INC.-2008-RO-00143RO

PATIENT
  Age: 79 Year
  Sex: Male

DRUGS (10)
  1. FUROSEMIDE [Suspect]
  2. PREDNISONE TAB [Suspect]
     Dosage: 30MG
  3. DIGOXIN [Suspect]
  4. FLUTICASONE PROPIONATE [Suspect]
  5. IPRATROPIUM BROMIDE [Suspect]
  6. OXYGEN [Suspect]
     Indication: OXYGEN SUPPLEMENTATION
  7. OMEPRAZOLE [Suspect]
  8. FUSIDIC ACID [Concomitant]
     Indication: PHAEHYPHOMYCOSIS
     Route: 061
  9. AMOXYCILIN-CLAVULANIC ACID [Concomitant]
     Indication: PHAEHYPHOMYCOSIS
     Route: 048
  10. ITRACONAZOLE [Concomitant]
     Indication: PHAEHYPHOMYCOSIS
     Dosage: 200MG
     Route: 048

REACTIONS (1)
  - PHAEHYPHOMYCOSIS [None]
